FAERS Safety Report 12876631 (Version 1)
Quarter: 2016Q4

REPORT INFORMATION
  Report Type: Spontaneous
  Country: US (occurrence: US)
  Receive Date: 20161022
  Receipt Date: 20161022
  Transmission Date: 20170207
  Serious: Yes (Disabling, Other)
  Sender: FDA-Public Use
  Company Number: None

PATIENT
  Age: 78 Year
  Sex: Male
  Weight: 86.85 kg

DRUGS (14)
  1. ECOTR- IN [Concomitant]
  2. ENALAPRIL [Concomitant]
     Active Substance: ENALAPRIL
  3. NEXIUM [Concomitant]
     Active Substance: ESOMEPRAZOLE MAGNESIUM
  4. PRADAXA [Suspect]
     Active Substance: DABIGATRAN ETEXILATE MESYLATE
     Indication: CEREBROVASCULAR ACCIDENT PROPHYLAXIS
     Dosage: ?          QUANTITY:1 CAPSULE(S);?
     Route: 048
     Dates: start: 20150601, end: 20161007
  5. AVODART [Concomitant]
     Active Substance: DUTASTERIDE
  6. CRESTOR [Concomitant]
     Active Substance: ROSUVASTATIN CALCIUM
  7. METOPROLOE [Concomitant]
  8. PROBIOTIC [Concomitant]
     Active Substance: PROBIOTICS NOS
  9. D [Concomitant]
  10. CALCIUM [Concomitant]
     Active Substance: CALCIUM
  11. TURMINIC [Concomitant]
  12. MULTI [Concomitant]
  13. FOLIC ACID. [Concomitant]
     Active Substance: FOLIC ACID
  14. RAPAFLO [Concomitant]
     Active Substance: SILODOSIN

REACTIONS (5)
  - Arthralgia [None]
  - Therapy non-responder [None]
  - Activities of daily living impaired [None]
  - Asthenia [None]
  - Abasia [None]

NARRATIVE: CASE EVENT DATE: 20161007
